FAERS Safety Report 13578485 (Version 2)
Quarter: 2017Q2

REPORT INFORMATION
  Report Type: Spontaneous
  Country: US (occurrence: US)
  Receive Date: 20170524
  Receipt Date: 20170526
  Transmission Date: 20170830
  Serious: No
  Sender: FDA-Public Use
  Company Number: US-BAYER-2017-098295

PATIENT
  Sex: Female

DRUGS (1)
  1. MIRENA [Suspect]
     Active Substance: LEVONORGESTREL
     Indication: CONTRACEPTION
     Dosage: 20 MCG/24HR, CONT
     Route: 015
     Dates: start: 201009, end: 201705

REACTIONS (7)
  - Back pain [Recovering/Resolving]
  - Ovarian cyst [Recovering/Resolving]
  - Acne [Recovering/Resolving]
  - Abdominal distension [Recovered/Resolved]
  - Weight increased [Recovering/Resolving]
  - Abdominal pain lower [Recovering/Resolving]
  - Product use issue [None]
